FAERS Safety Report 6340805-3 (Version None)
Quarter: 2009Q3

REPORT INFORMATION
  Report Type: 
  Country: None (occurrence: None)
  Receive Date: 20090904
  Receipt Date: 20090824
  Transmission Date: 20100115
  Serious: Yes (Hospitalization, Other)
  Sender: FDA-Public Use
  Company Number: PHHY2009BR35801

PATIENT
  Sex: Male
  Weight: 75 kg

DRUGS (2)
  1. FORASEQ [Suspect]
     Indication: ASTHMA
     Dosage: 12/400 MCG , 12/12 HOURS
  2. FORASEQ [Suspect]
     Indication: DYSPNOEA

REACTIONS (4)
  - ABDOMINAL PAIN LOWER [None]
  - DYSURIA [None]
  - OEDEMA PERIPHERAL [None]
  - PROSTATIC DISORDER [None]
